FAERS Safety Report 20368289 (Version 1)
Quarter: 2022Q1

REPORT INFORMATION
  Report Type: Spontaneous
  Country: CZ (occurrence: CZ)
  Receive Date: 20220124
  Receipt Date: 20220124
  Transmission Date: 20220423
  Serious: Yes (Other)
  Sender: FDA-Public Use
  Company Number: CZ-ASTELLAS-2022US002217

PATIENT
  Sex: Male

DRUGS (3)
  1. XTANDI [Suspect]
     Active Substance: ENZALUTAMIDE
     Indication: Prostate cancer
     Dosage: 4 DF (4 TABLETS), ONCE DAILY
     Route: 065
     Dates: start: 201605
  2. SUTENT [Concomitant]
     Active Substance: SUNITINIB MALATE
     Indication: Renal neoplasm
     Route: 065
  3. LEVOTHYROXINE SODIUM [Concomitant]
     Active Substance: LEVOTHYROXINE SODIUM
     Indication: Thyroid therapy
     Dosage: 50 MCG 5 DAYS AND 75 MCG 2 DAYS IN A WEEK
     Route: 065

REACTIONS (3)
  - Malignant neoplasm progression [Unknown]
  - Adrenal adenoma [Unknown]
  - Osteoporosis [Unknown]

NARRATIVE: CASE EVENT DATE: 20220115
